FAERS Safety Report 9090996 (Version 1)
Quarter: 2013Q1

REPORT INFORMATION
  Report Type: Spontaneous
  Country: DE (occurrence: DE)
  Receive Date: 20130131
  Receipt Date: 20130131
  Transmission Date: 20140127
  Serious: Yes (Other)
  Sender: FDA-Public Use
  Company Number: DE-PFIZER INC-2013012061

PATIENT
  Age: 71 Year
  Sex: Male

DRUGS (1)
  1. TREVILOR RETARD [Suspect]
     Indication: DEPRESSION
     Dosage: 1 X 225 MG AND 1 X 150 MG

REACTIONS (1)
  - Lung disorder [Unknown]
